FAERS Safety Report 9424145 (Version 2)
Quarter: 2013Q3

REPORT INFORMATION
  Report Type: Report from Study
  Country: CA (occurrence: CA)
  Receive Date: 20130729
  Receipt Date: 20130731
  Transmission Date: 20140515
  Serious: Yes (Death)
  Sender: FDA-Public Use
  Company Number: PHHY2013CA080025

PATIENT
  Age: 46 Year
  Sex: Male

DRUGS (4)
  1. CLOZARIL [Suspect]
     Indication: NEGATIVE THOUGHTS
     Dosage: 450 MG, DAILY
     Route: 048
     Dates: start: 20011029
  2. METFORMIN [Concomitant]
     Dosage: UNK UKN, TID
  3. GLYBURIDE [Concomitant]
     Dosage: 5 MG, BID
  4. COGENTIN [Concomitant]
     Dosage: 0.5 DF, DAILY

REACTIONS (2)
  - Death [Fatal]
  - Mild mental retardation [Unknown]
